FAERS Safety Report 21534373 (Version 1)
Quarter: 2022Q4

REPORT INFORMATION
  Report Type: Spontaneous
  Country: JP (occurrence: JP)
  Receive Date: 20221101
  Receipt Date: 20221101
  Transmission Date: 20230113
  Serious: Yes (Other)
  Sender: FDA-Public Use
  Company Number: JP-GSKNCCC-Case-01288583_AE-48686

PATIENT

DRUGS (2)
  1. FLUTICASONE FUROATE [Suspect]
     Active Substance: FLUTICASONE FUROATE
     Indication: Rhinitis allergic
     Dosage: UNK, QD
     Route: 045
     Dates: start: 20200513
  2. ALESION [Suspect]
     Active Substance: EPINASTINE HYDROCHLORIDE
     Dosage: 10 MG, QD
     Route: 048
     Dates: start: 20210602

REACTIONS (1)
  - Growth retardation [Unknown]

NARRATIVE: CASE EVENT DATE: 20210101
